FAERS Safety Report 4796814-9 (Version None)
Quarter: 2005Q3

REPORT INFORMATION
  Report Type: 
  Country: None (occurrence: None)
  Receive Date: 20050916
  Receipt Date: 20050510
  Transmission Date: 20060218
  Serious: Yes (Other)
  Sender: FDA-Public Use
  Company Number: US-JNJFOC-20050503137

PATIENT
  Age: 47 Year
  Sex: Male

DRUGS (6)
  1. TOPAMAX [Suspect]
     Indication: NEURALGIA
     Dosage: 100 MG, 3 IN 1 DAY, ORAL
     Route: 048
     Dates: start: 20020101, end: 20041101
  2. DURAGESIC [Concomitant]
  3. HCTZ (HYDROCHLOROTHIAZIDE) TABLETS [Concomitant]
  4. VENTOLIN (SALBUTAMOL) INHALATION [Concomitant]
  5. CELEBREX [Concomitant]
  6. OXY IR (OXYCODONE HYDROCHLORIDE) TABLETS [Concomitant]

REACTIONS (1)
  - NEPHROLITHIASIS [None]
